FAERS Safety Report 21612602 (Version 3)
Quarter: 2022Q4

REPORT INFORMATION
  Report Type: Spontaneous
  Country: US (occurrence: US)
  Receive Date: 20221118
  Receipt Date: 20221220
  Transmission Date: 20230113
  Serious: Yes (Hospitalization, Other)
  Sender: FDA-Public Use
  Company Number: US-JNJFOC-20221123370

PATIENT
  Age: 42 Year
  Sex: Female
  Weight: 181.60 kg

DRUGS (5)
  1. TREMFYA [Suspect]
     Active Substance: GUSELKUMAB
     Indication: Psoriasis
     Route: 065
  2. TREMFYA [Suspect]
     Active Substance: GUSELKUMAB
     Route: 065
  3. PENICILLIN G [Concomitant]
     Active Substance: PENICILLIN G
  4. BENADRYL [Concomitant]
     Active Substance: DIPHENHYDRAMINE HYDROCHLORIDE
  5. EPIPEN [Concomitant]
     Active Substance: EPINEPHRINE

REACTIONS (9)
  - Cholecystectomy [Unknown]
  - Diabetes mellitus [Unknown]
  - Medical observation [Unknown]
  - Injection site pain [Unknown]
  - Psoriasis [Unknown]
  - Drug delivery system malfunction [Unknown]
  - Product dose omission issue [Unknown]
  - Injection site discolouration [Unknown]
  - Body height decreased [Unknown]

NARRATIVE: CASE EVENT DATE: 20221001
